FAERS Safety Report 8826714 (Version 2)
Quarter: 2013Q2

REPORT INFORMATION
  Report Type: Report from Study
  Country: SE (occurrence: SE)
  Receive Date: 20121007
  Receipt Date: 20130410
  Transmission Date: 20140414
  Serious: Yes (Congenital Anomaly)
  Sender: FDA-Public Use
  Company Number: PHHY2012SE086661

PATIENT
  Sex: 0

DRUGS (2)
  1. TEGRETOL [Suspect]
     Indication: EPILEPSY
     Dosage: 500 MG, DAILY
  2. LEVETIRACETAM [Suspect]
     Indication: EPILEPSY
     Route: 064

REACTIONS (3)
  - Trisomy 13 [Unknown]
  - Brain malformation [Unknown]
  - Foetal exposure during pregnancy [Unknown]
